FAERS Safety Report 6189875-6 (Version None)
Quarter: 2009Q2

REPORT INFORMATION
  Report Type: 
  Country: None (occurrence: None)
  Receive Date: 20090514
  Receipt Date: 20090512
  Transmission Date: 20091009
  Serious: Yes (Other)
  Sender: FDA-Public Use
  Company Number: ES-ASTRAZENECA-2009AC01364

PATIENT
  Sex: Female

DRUGS (4)
  1. SEROQUEL [Suspect]
  2. LITHIUM CARBONATE [Concomitant]
  3. VALPROIC ACID [Concomitant]
  4. DIAZEPAM [Concomitant]

REACTIONS (1)
  - DELUSIONAL DISORDER, PERSECUTORY TYPE [None]
